FAERS Safety Report 7657498-5 (Version None)
Quarter: 2011Q3

REPORT INFORMATION
  Report Type: 
  Country: None (occurrence: None)
  Receive Date: 20110804
  Receipt Date: 20110802
  Transmission Date: 20111222
  Serious: Yes (Hospitalization, Other)
  Sender: FDA-Public Use
  Company Number: CA-ABBOTT-11P-028-0838423-00

PATIENT
  Sex: Female
  Weight: 74.91 kg

DRUGS (12)
  1. AMLODIPINE [Concomitant]
     Indication: HYPERTENSION
     Route: 048
  2. CRESTOR [Concomitant]
     Indication: BLOOD CHOLESTEROL INCREASED
     Route: 048
     Dates: start: 20010101
  3. HUMIRA [Suspect]
     Indication: CROHN'S DISEASE
     Route: 058
     Dates: start: 20100319
  4. ADCO-CAPTOPRIL [Concomitant]
     Indication: HYPERTENSION
     Route: 048
  5. RASILEZ [Concomitant]
     Indication: HYPERTENSION
     Route: 048
     Dates: start: 20090101
  6. PENTASA [Concomitant]
     Indication: CROHN'S DISEASE
     Route: 048
  7. CHLORPHENIRAMINE MALEATE [Concomitant]
     Indication: HYPERSENSITIVITY
  8. NOVAMIX [Concomitant]
     Indication: DIABETES MELLITUS
     Route: 058
  9. HYDROZOLINE [Concomitant]
     Indication: HYPERTENSION
     Route: 048
  10. CLONIDINE [Concomitant]
     Indication: HYPERTENSION
  11. RABEPRAZOLE SODIUM [Concomitant]
     Indication: HYPERTENSION
     Route: 048
  12. HYDROCHLOROTHIAZIDE [Concomitant]
     Indication: HYPERTENSION
     Route: 048

REACTIONS (4)
  - GASTROINTESTINAL STOMA COMPLICATION [None]
  - PAIN [None]
  - INTESTINAL OBSTRUCTION [None]
  - ESCHERICHIA URINARY TRACT INFECTION [None]
